FAERS Safety Report 12328372 (Version 2)
Quarter: 2016Q3

REPORT INFORMATION
  Report Type: Spontaneous
  Country: US (occurrence: US)
  Receive Date: 20160503
  Receipt Date: 20160923
  Transmission Date: 20161109
  Serious: Yes (Disabling)
  Sender: FDA-Public Use
  Company Number: US-009507513-1605USA001360

PATIENT
  Sex: Male
  Weight: 120.64 kg

DRUGS (5)
  1. LAMICTAL [Concomitant]
     Active Substance: LAMOTRIGINE
     Indication: BIPOLAR DISORDER
     Dosage: 100 MG, BID
     Route: 048
     Dates: start: 2004
  2. FINASTERIDE. [Suspect]
     Active Substance: FINASTERIDE
     Indication: BENIGN PROSTATIC HYPERPLASIA
     Dosage: 5 MG, QD
     Route: 048
     Dates: start: 2006, end: 201405
  3. TAMSULOSIN HYDROCHLORIDE. [Suspect]
     Active Substance: TAMSULOSIN HYDROCHLORIDE
     Indication: BENIGN PROSTATIC HYPERPLASIA
     Dosage: UNK, UNKNOWN
     Route: 065
     Dates: start: 2006, end: 2014
  4. FINASTERIDE. [Suspect]
     Active Substance: FINASTERIDE
     Indication: URINARY RETENTION
     Dosage: 20 MG, QD
     Route: 048
     Dates: start: 2006
  5. TAMSULOSIN HYDROCHLORIDE. [Suspect]
     Active Substance: TAMSULOSIN HYDROCHLORIDE
     Indication: URINARY RETENTION

REACTIONS (35)
  - Loss of libido [Not Recovered/Not Resolved]
  - Testicular atrophy [Unknown]
  - Disturbance in attention [Not Recovered/Not Resolved]
  - Sleep disorder [Not Recovered/Not Resolved]
  - Irritability [Unknown]
  - Gynaecomastia [Unknown]
  - Panic attack [Not Recovered/Not Resolved]
  - Listless [Not Recovered/Not Resolved]
  - Amnesia [Not Recovered/Not Resolved]
  - Prostatic specific antigen increased [Recovered/Resolved]
  - Sexual dysfunction [Not Recovered/Not Resolved]
  - Erectile dysfunction [Not Recovered/Not Resolved]
  - Weight increased [Unknown]
  - Adverse event [Not Recovered/Not Resolved]
  - Anxiety [Not Recovered/Not Resolved]
  - Anger [Not Recovered/Not Resolved]
  - Adverse drug reaction [Recovered/Resolved]
  - Intentional overdose [Recovered/Resolved]
  - Androgens abnormal [Unknown]
  - Sperm concentration decreased [Unknown]
  - Feeling abnormal [Not Recovered/Not Resolved]
  - Dizziness [Recovered/Resolved]
  - Decreased interest [Not Recovered/Not Resolved]
  - Penis disorder [Unknown]
  - Muscle atrophy [Unknown]
  - Breast enlargement [Unknown]
  - Depression [Not Recovered/Not Resolved]
  - Blood glucose increased [Unknown]
  - Dry skin [Unknown]
  - Alopecia [Unknown]
  - Asthenia [Unknown]
  - Depression [Not Recovered/Not Resolved]
  - Feelings of worthlessness [Not Recovered/Not Resolved]
  - Asthenia [Unknown]
  - Secondary hypogonadism [Not Recovered/Not Resolved]

NARRATIVE: CASE EVENT DATE: 2006
